FAERS Safety Report 8718523 (Version 2)
Quarter: 2012Q4

REPORT INFORMATION
  Report Type: 
  Country: US (occurrence: US)
  Receive Date: 20120810
  Receipt Date: 20120906
  Transmission Date: 20130627
  Serious: No
  Sender: FDA-Public Use
  Company Number: US-009507513-1208USA003840

PATIENT

DRUGS (3)
  1. CLARITIN REDITABS 12HR [Suspect]
     Indication: RHINORRHOEA
     Dosage: 5 mg, Once
     Route: 048
     Dates: start: 201206
  2. CLARITIN REDITABS 12HR [Suspect]
     Indication: MEDICAL OBSERVATION
  3. ARMOUR THYROID TABLETS [Concomitant]
     Indication: HYPOTHYROIDISM
     Dosage: 30 mg, qd

REACTIONS (3)
  - Headache [Recovered/Resolved]
  - Feeling abnormal [Recovered/Resolved]
  - Expired drug administered [Unknown]
